FAERS Safety Report 6471296-X (Version None)
Quarter: 2009Q4

REPORT INFORMATION
  Report Type: 
  Country: None (occurrence: None)
  Receive Date: 20091203
  Receipt Date: 20080428
  Transmission Date: 20100525
  Serious: Yes (Hospitalization)
  Sender: FDA-Public Use
  Company Number: US-ELI_LILLY_AND_COMPANY-US200802004438

PATIENT
  Age: 55 Year
  Sex: Male

DRUGS (5)
  1. CYMBALTA [Suspect]
     Indication: DIABETIC NEUROPATHY
     Dosage: 60 MG, UNK
  2. INSULIN [Concomitant]
  3. DILAUDID [Concomitant]
  4. DIOVAN [Concomitant]
  5. FENTANYL [Concomitant]
     Route: 061

REACTIONS (3)
  - CONFUSIONAL STATE [None]
  - CONVULSION [None]
  - HALLUCINATION [None]
